FAERS Safety Report 6784131-7 (Version None)
Quarter: 2010Q2

REPORT INFORMATION
  Report Type: 
  Country: None (occurrence: None)
  Receive Date: 20100622
  Receipt Date: 20100610
  Transmission Date: 20101027
  Serious: Yes (Other)
  Sender: FDA-Public Use
  Company Number: ES-PFIZER INC-2010059528

PATIENT
  Age: 32 Year
  Sex: Female
  Weight: 67 kg

DRUGS (1)
  1. CHAMPIX [Suspect]
     Indication: SMOKING CESSATION THERAPY
     Dosage: 1 MG, 2X/DAY
     Route: 048
     Dates: start: 20100405, end: 20100415

REACTIONS (5)
  - ABDOMINAL PAIN UPPER [None]
  - HYPOTENSION [None]
  - MALAISE [None]
  - NAUSEA [None]
  - PALLOR [None]
